FAERS Safety Report 12222283 (Version 1)
Quarter: 2016Q1

REPORT INFORMATION
  Report Type: Spontaneous
  Country: PT (occurrence: PT)
  Receive Date: 20160330
  Receipt Date: 20160330
  Transmission Date: 20160526
  Serious: Yes (Disabling)
  Sender: FDA-Public Use
  Company Number: PT-ALLERGAN-1650850US

PATIENT
  Age: 73 Year
  Sex: Female
  Weight: 66 kg

DRUGS (4)
  1. ACETAZOLAMIDA [Concomitant]
     Indication: INTRAOCULAR PRESSURE INCREASED
     Dosage: 125 MG, BID
     Route: 048
     Dates: start: 20160121, end: 20160208
  2. SAFLUTAN [Concomitant]
     Active Substance: TAFLUPROST
     Indication: INTRAOCULAR PRESSURE INCREASED
     Dosage: 1 GTT, BID
     Route: 047
     Dates: start: 20151001, end: 20151229
  3. LUMIGAN [Suspect]
     Active Substance: BIMATOPROST
     Indication: INTRAOCULAR PRESSURE INCREASED
     Dosage: 1 GTT, BID
     Route: 047
     Dates: start: 20160126, end: 20160208
  4. CARBINIB [Concomitant]
     Active Substance: ACETAZOLAMIDE
     Indication: INTRAOCULAR PRESSURE INCREASED
     Dosage: 125 MG, BID
     Route: 048
     Dates: start: 20160126, end: 20160208

REACTIONS (6)
  - Skin hyperpigmentation [Recovering/Resolving]
  - Inappropriate schedule of drug administration [Unknown]
  - Enophthalmos [Recovering/Resolving]
  - Eyelash hyperpigmentation [Recovering/Resolving]
  - Disorder of globe [Recovering/Resolving]
  - Eye swelling [Recovering/Resolving]

NARRATIVE: CASE EVENT DATE: 20160126
